FAERS Safety Report 7251398-0 (Version None)
Quarter: 2011Q1

REPORT INFORMATION
  Report Type: 
  Country: None (occurrence: None)
  Receive Date: 20110119
  Receipt Date: 20110106
  Transmission Date: 20110831
  Serious: Yes (Hospitalization, Other)
  Sender: FDA-Public Use
  Company Number: 2010S1000409

PATIENT
  Age: 63 Year
  Sex: Female

DRUGS (5)
  1. ANTIHYPERTENSIVE [Concomitant]
  2. CHOLESTEROL MEDICATION [Concomitant]
  3. DARVOCET-N 100 [Suspect]
     Indication: BACK PAIN
     Dosage: 200 MG; PRN; PO
     Route: 048
     Dates: start: 19990101, end: 20101101
  4. DARVOCET-N 100 [Suspect]
     Indication: ARTHRALGIA
     Dosage: 200 MG; PRN; PO
     Route: 048
     Dates: start: 19990101, end: 20101101
  5. NEXIUM [Concomitant]

REACTIONS (2)
  - MYOCARDIAL INFARCTION [None]
  - CEREBROVASCULAR ACCIDENT [None]
